FAERS Safety Report 11028740 (Version 2)
Quarter: 2015Q2

REPORT INFORMATION
  Report Type: Spontaneous
  Country: US (occurrence: US)
  Receive Date: 20150414
  Receipt Date: 20150525
  Transmission Date: 20150821
  Serious: No
  Sender: FDA-Public Use
  Company Number: US-JNJFOC-20130803146

PATIENT
  Age: 33 Year
  Sex: Female
  Weight: 63.5 kg

DRUGS (3)
  1. ORTHO TRI CYCLEN LO [Suspect]
     Active Substance: ETHINYL ESTRADIOL\NORGESTIMATE
     Indication: CONTRACEPTION
     Dosage: STARTED A FEW MONTHS AGO
     Route: 048
     Dates: start: 2013
  2. TYLENOL [Concomitant]
     Active Substance: ACETAMINOPHEN
     Route: 065
  3. ORTHO TRI CYCLEN LO [Suspect]
     Active Substance: ETHINYL ESTRADIOL\NORGESTIMATE
     Indication: CONTRACEPTION
     Dosage: STARTED YEARS AGO
     Route: 048

REACTIONS (2)
  - Inappropriate schedule of drug administration [Not Recovered/Not Resolved]
  - Adverse event [Unknown]

NARRATIVE: CASE EVENT DATE: 20130806
